FAERS Safety Report 16473248 (Version 4)
Quarter: 2019Q3

REPORT INFORMATION
  Report Type: Spontaneous
  Country: PT (occurrence: PT)
  Receive Date: 20190625
  Receipt Date: 20190723
  Transmission Date: 20191004
  Serious: Yes (Hospitalization, Other)
  Sender: FDA-Public Use
  Company Number: PT-MYLANLABS-2019M1007788

PATIENT
  Age: 71 Year
  Sex: Female

DRUGS (12)
  1. CLEMASTINE [Concomitant]
     Active Substance: CLEMASTINE
     Indication: PRODUCT USED FOR UNKNOWN INDICATION
  2. DEXAMETHASONE. [Concomitant]
     Active Substance: DEXAMETHASONE
     Indication: PRODUCT USED FOR UNKNOWN INDICATION
  3. RANITIDINE. [Concomitant]
     Active Substance: RANITIDINE
     Indication: PRODUCT USED FOR UNKNOWN INDICATION
  4. PREDNISOLONE. [Concomitant]
     Active Substance: PREDNISOLONE
     Indication: PRODUCT USED FOR UNKNOWN INDICATION
  5. TRASTUZUMAB. [Suspect]
     Active Substance: TRASTUZUMAB
     Indication: BREAST CANCER METASTATIC
     Dosage: UNK
     Route: 065
  6. PACLITAXEL. [Suspect]
     Active Substance: PACLITAXEL
     Indication: BREAST CANCER METASTATIC
     Dosage: 80 MILLIGRAM/SQ. METER
     Route: 065
  7. TAMOXIFEN [Concomitant]
     Active Substance: TAMOXIFEN
     Indication: BREAST CANCER
  8. FLUOROURACIL SODIUM [Concomitant]
     Active Substance: FLUOROURACIL SODIUM
     Indication: BREAST CANCER
     Dosage: 500 MILLIGRAM/SQ. METER
  9. PACLITAXEL. [Suspect]
     Active Substance: PACLITAXEL
     Dosage: UNK
  10. DOCETAXEL. [Concomitant]
     Active Substance: DOCETAXEL
     Indication: BREAST CANCER
     Dosage: 75 MILLIGRAM/SQ. METER
  11. CYCLOPHOSPHAMIDE. [Concomitant]
     Active Substance: CYCLOPHOSPHAMIDE
     Indication: BREAST CANCER
     Dosage: 600 MILLIGRAM/SQ. METER
  12. EPIRUBICIN [Concomitant]
     Active Substance: EPIRUBICIN
     Indication: BREAST CANCER
     Dosage: 100 MILLIGRAM/SQ. METER

REACTIONS (17)
  - Neutrophilia [Unknown]
  - Off label use [Unknown]
  - Dysstasia [Unknown]
  - Tachycardia [Unknown]
  - Intentional product use issue [Unknown]
  - Normochromic anaemia [Unknown]
  - Lymphadenopathy [Unknown]
  - Gait disturbance [Unknown]
  - Pulmonary toxicity [Unknown]
  - C-reactive protein increased [Unknown]
  - Hypotension [Unknown]
  - Lymphocytosis [Unknown]
  - Cough [Unknown]
  - Pyrexia [Unknown]
  - Muscular weakness [Unknown]
  - Fatigue [Unknown]
  - Interstitial lung disease [Recovering/Resolving]

NARRATIVE: CASE EVENT DATE: 201610
